FAERS Safety Report 11486731 (Version 4)
Quarter: 2016Q1

REPORT INFORMATION
  Report Type: Spontaneous
  Country: US (occurrence: US)
  Receive Date: 20150910
  Receipt Date: 20160320
  Transmission Date: 20160525
  Serious: Yes (Death, Other)
  Sender: FDA-Public Use
  Company Number: US-009507513-1509USA004781

PATIENT
  Age: 14 Year
  Sex: Female

DRUGS (1)
  1. NEXPLANON [Suspect]
     Active Substance: ETONOGESTREL
     Dosage: UNK
     Route: 059
     Dates: start: 20150901

REACTIONS (3)
  - Road traffic accident [Fatal]
  - Device difficult to use [Recovered/Resolved]
  - Brain injury [Fatal]

NARRATIVE: CASE EVENT DATE: 20150901
